FAERS Safety Report 6000796-1 (Version None)
Quarter: 2008Q4

REPORT INFORMATION
  Report Type: 
  Country: None (occurrence: None)
  Receive Date: 20081211
  Receipt Date: 20081126
  Transmission Date: 20090506
  Serious: Yes (Other)
  Sender: FDA-Public Use
  Company Number: 2008S1000540

PATIENT
  Age: 51 Year
  Sex: Male

DRUGS (4)
  1. ACITRETIN [Suspect]
     Indication: ICHTHYOSIS
     Dosage: ; PO, 25 MG; QD; PO
     Route: 048
     Dates: start: 19960101, end: 19970101
  2. ACITRETIN [Suspect]
     Indication: PROPHYLAXIS
     Dosage: ; PO, 25 MG; QD; PO
     Route: 048
     Dates: start: 19960101, end: 19970101
  3. ACITRETIN [Suspect]
     Indication: ICHTHYOSIS
     Dosage: ; PO, 25 MG; QD; PO
     Route: 048
     Dates: start: 20021201
  4. ACITRETIN [Suspect]
     Indication: PROPHYLAXIS
     Dosage: ; PO, 25 MG; QD; PO
     Route: 048
     Dates: start: 20021201

REACTIONS (8)
  - ALOPECIA [None]
  - BASAL CELL CARCINOMA [None]
  - BOWEN'S DISEASE [None]
  - LYMPHADENOPATHY [None]
  - METASTASES TO LYMPH NODES [None]
  - METASTATIC SQUAMOUS CELL CARCINOMA [None]
  - OFF LABEL USE [None]
  - SKIN CANCER [None]
